FAERS Safety Report 8509506-7 (Version None)
Quarter: 2012Q3

REPORT INFORMATION
  Report Type: 
  Country: None (occurrence: None)
  Receive Date: 20120713
  Receipt Date: 20120710
  Transmission Date: 20120928
  Serious: Yes (Death)
  Sender: FDA-Public Use
  Company Number: VE-PFIZER INC-2012141385

PATIENT
  Age: 74 Year
  Sex: Male

DRUGS (4)
  1. LIPITOR [Suspect]
     Indication: HYPERCHOLESTEROLAEMIA
     Dosage: 40 MG, 1X/DAY
     Route: 048
     Dates: start: 20040101
  2. ALTACE [Concomitant]
     Dosage: 2.5 MG, UNK
     Route: 048
  3. GLUCOFAGE [Concomitant]
     Dosage: 500 MG, UNK
     Route: 048
  4. AMARYL [Concomitant]
     Dosage: 2 MG, UNK
     Route: 048

REACTIONS (1)
  - RESPIRATORY ARREST [None]
